FAERS Safety Report 8508203 (Version 2)
Quarter: 2013Q4

REPORT INFORMATION
  Report Type: Spontaneous
  Country: US (occurrence: US)
  Receive Date: 20120412
  Receipt Date: 20131118
  Transmission Date: 20140711
  Serious: No
  Sender: FDA-Public Use
  Company Number: US-ASTRAZENECA-2011SE64572

PATIENT
  Age: 69 Year
  Sex: Female
  Weight: 64.4 kg

DRUGS (6)
  1. NEXIUM [Suspect]
     Indication: GASTROOESOPHAGEAL REFLUX DISEASE
     Route: 048
     Dates: start: 2010
  2. OMEPRAZOLE [Suspect]
     Route: 048
  3. OMEPRAZOLE [Suspect]
     Dosage: OTC
     Route: 048
     Dates: start: 2007
  4. TUMS [Concomitant]
  5. PREVACID [Concomitant]
  6. TAGAMET [Concomitant]

REACTIONS (6)
  - Gastrooesophageal reflux disease [Unknown]
  - Aphagia [Unknown]
  - Abdominal discomfort [Unknown]
  - Flatulence [Unknown]
  - Drug dose omission [Unknown]
  - Drug ineffective [Unknown]
